FAERS Safety Report 5291945-1 (Version None)
Quarter: 2007Q2

REPORT INFORMATION
  Report Type: 
  Country: None (occurrence: None)
  Receive Date: 20070403
  Receipt Date: 20070327
  Transmission Date: 20071010
  Serious: Yes (Disabling)
  Sender: FDA-Public Use
  Company Number: OSCN-GE-0702S-0100

PATIENT
  Age: 49 Year
  Sex: Female
  Weight: 80 kg

DRUGS (4)
  1. OMNISCAN [Suspect]
     Indication: DRUG USE FOR UNKNOWN INDICATION
     Dosage: SEE IMAGE
     Route: 048
     Dates: start: 20041111, end: 20041111
  2. PROHANCE [Concomitant]
  3. GADOPENTETATE DIMEGLUMINE (MAGNEVIST) [Concomitant]
  4. ERYTHROPOETIN [Concomitant]

REACTIONS (4)
  - ARTHRALGIA [None]
  - GAIT DISTURBANCE [None]
  - NEPHROGENIC FIBROSING DERMOPATHY [None]
  - RENAL TRANSPLANT [None]
